FAERS Safety Report 24264555 (Version 1)
Quarter: 2024Q3

REPORT INFORMATION
  Report Type: Spontaneous
  Country: US (occurrence: US)
  Receive Date: 20240829
  Receipt Date: 20240829
  Transmission Date: 20241017
  Serious: Yes (Hospitalization)
  Sender: ROCHE
  Company Number: US-ROCHE-2764278

PATIENT
  Age: 64 Year
  Sex: Male

DRUGS (6)
  1. MYCOPHENOLATE MOFETIL [Suspect]
     Active Substance: MYCOPHENOLATE MOFETIL
     Indication: Prophylaxis against transplant rejection
     Route: 065
  2. PREDNISONE [Suspect]
     Active Substance: PREDNISONE
     Indication: Prophylaxis against transplant rejection
     Route: 065
  3. TACROLIMUS [Suspect]
     Active Substance: TACROLIMUS
     Indication: Prophylaxis against transplant rejection
     Dosage: WITH A 24-HOUR TROUGH OF 6-7 NG/ML IN THE FEW MONTHS
     Route: 065
  4. SULFAMETHOXAZOLE\TRIMETHOPRIM [Concomitant]
     Active Substance: SULFAMETHOXAZOLE\TRIMETHOPRIM
  5. VORICONAZOLE [Concomitant]
     Active Substance: VORICONAZOLE
  6. POSACONAZOLE [Concomitant]
     Active Substance: POSACONAZOLE
     Dosage: DELAYED-RELEASE TABLETS (300 MG DAILY) DUE?TO VISUAL HALLUCINATIONS

REACTIONS (2)
  - Coccidioidomycosis [Recovering/Resolving]
  - Phaeohyphomycosis [Recovering/Resolving]
